FAERS Safety Report 5325762-0 (Version None)
Quarter: 2007Q2

REPORT INFORMATION
  Report Type: 
  Country: None (occurrence: None)
  Receive Date: 20070509
  Receipt Date: 20070423
  Transmission Date: 20071010
  Serious: Yes (Death)
  Sender: FDA-Public Use
  Company Number: 2006S1011670

PATIENT
  Age: 85 Year
  Sex: Female
  Weight: 31.7518 kg

DRUGS (6)
  1. BUSPIRONE HYDROCHLORIDE [Suspect]
     Indication: ANXIETY
     Dosage: 5 MG; TWICE A DAY; ORAL
     Route: 048
     Dates: start: 20040628, end: 20061224
  2. ABILIFY [Suspect]
     Dosage: ORAL
     Route: 048
     Dates: end: 20061101
  3. RABEPRAZOLE SODIUM [Concomitant]
  4. ATENOLOL [Concomitant]
  5. CLONIDINE [Concomitant]
  6. ACETAMINOPHEN [Concomitant]

REACTIONS (3)
  - GENERAL PHYSICAL HEALTH DETERIORATION [None]
  - MUSCULAR WEAKNESS [None]
  - POSTURE ABNORMAL [None]
